FAERS Safety Report 18511802 (Version 1)
Quarter: 2020Q4

REPORT INFORMATION
  Report Type: Spontaneous
  Country: US (occurrence: US)
  Receive Date: 20201116
  Receipt Date: 20201116
  Transmission Date: 20210114
  Serious: Yes (Disabling)
  Sender: FDA-Public Use
  Company Number: None

PATIENT
  Age: 48 Year
  Sex: Female
  Weight: 167.83 kg

DRUGS (14)
  1. ISOVUE 300 [Suspect]
     Active Substance: IOPAMIDOL
     Route: 014
  2. ASPIRIN. [Concomitant]
     Active Substance: ASPIRIN
  3. MYRBETRIQ [Concomitant]
     Active Substance: MIRABEGRON
  4. ISORSOBRIDE [Concomitant]
  5. LOSARTAN. [Concomitant]
     Active Substance: LOSARTAN
  6. LIDOCAINE. [Suspect]
     Active Substance: LIDOCAINE
     Route: 014
  7. AMLODIPINE [Concomitant]
     Active Substance: AMLODIPINE BESYLATE
  8. BUPROPION. [Concomitant]
     Active Substance: BUPROPION
  9. CARVEDILOL. [Concomitant]
     Active Substance: CARVEDILOL
  10. ATORVASTATIN [Concomitant]
     Active Substance: ATORVASTATIN
  11. MARCAINE [Suspect]
     Active Substance: BUPIVACAINE HYDROCHLORIDE
     Route: 014
  12. DEPO-MEDROL [Suspect]
     Active Substance: METHYLPREDNISOLONE ACETATE
     Route: 014
  13. OMEPRAZOLE. [Concomitant]
     Active Substance: OMEPRAZOLE
  14. GARCINIA CAMBROGIA [Concomitant]

REACTIONS (8)
  - Limb injury [None]
  - Pain in extremity [None]
  - Quality of life decreased [None]
  - Disability [None]
  - Paralysis [None]
  - Gait disturbance [None]
  - Nerve injury [None]
  - Post procedural complication [None]

NARRATIVE: CASE EVENT DATE: 201811
